FAERS Safety Report 20766293 (Version 1)
Quarter: 2022Q2

REPORT INFORMATION
  Report Type: Report from Study
  Country: US (occurrence: US)
  Receive Date: 20220428
  Receipt Date: 20220428
  Transmission Date: 20220720
  Serious: Yes (Other)
  Sender: FDA-Public Use
  Company Number: US-REGENERON PHARMACEUTICALS, INC.-2022-056207

PATIENT
  Age: 72 Year
  Sex: Female

DRUGS (3)
  1. CASIRIVIMAB\IMDEVIMAB [Suspect]
     Active Substance: CASIRIVIMAB\IMDEVIMAB
     Indication: COVID-19 treatment
     Dosage: UNK, SINGLE
     Route: 042
     Dates: start: 20211206, end: 20211206
  2. EYLEA [Concomitant]
     Active Substance: AFLIBERCEPT
     Indication: Product used for unknown indication
     Dosage: EVERY 10 WEEKS
  3. Children^s Liquid Ibuprofen [Concomitant]
     Dosage: UNK, AS NECESSARY
     Route: 048

REACTIONS (8)
  - Hallucination [Recovered/Resolved]
  - Peripheral coldness [Unknown]
  - Skin discolouration [Unknown]
  - Erythema [Not Recovered/Not Resolved]
  - Muscular weakness [Recovered/Resolved]
  - Constipation [Recovered/Resolved]
  - Cough [Recovered/Resolved]
  - Chest discomfort [Recovered/Resolved]

NARRATIVE: CASE EVENT DATE: 20211201
